FAERS Safety Report 6175375-6 (Version None)
Quarter: 2009Q2

REPORT INFORMATION
  Report Type: 
  Country: None (occurrence: None)
  Receive Date: 20090430
  Receipt Date: 20090428
  Transmission Date: 20091009
  Serious: Yes (Disabling)
  Sender: FDA-Public Use
  Company Number: DE-MERCK-0902DEU00393

PATIENT
  Age: 68 Year
  Sex: Male

DRUGS (9)
  1. JANUVIA [Suspect]
     Indication: TYPE 2 DIABETES MELLITUS
     Route: 048
     Dates: start: 20080101, end: 20080101
  2. JANUVIA [Suspect]
     Route: 048
     Dates: start: 20080101, end: 20090201
  3. INSULIN GLARGINE [Concomitant]
     Route: 065
  4. INSULIN HUMAN [Concomitant]
     Route: 065
  5. CLOPIDOGREL BISULFATE [Concomitant]
     Route: 065
  6. NEBIVOLOL HYDROCHLORIDE [Concomitant]
     Route: 065
  7. TORSEMIDE [Concomitant]
     Route: 065
  8. HYDROCHLOROTHIAZIDE AND RAMIPRIL [Concomitant]
     Route: 065
  9. ALLOPURINOL [Concomitant]
     Route: 065

REACTIONS (4)
  - ARTHRALGIA [None]
  - DRUG ERUPTION [None]
  - OFF LABEL USE [None]
  - PAIN IN EXTREMITY [None]
